FAERS Safety Report 5498993-7 (Version None)
Quarter: 2007Q4

REPORT INFORMATION
  Report Type: 
  Country: None (occurrence: None)
  Receive Date: 20071026
  Receipt Date: 20070514
  Transmission Date: 20080405
  Serious: No
  Sender: FDA-Public Use
  Company Number: A0651193A

PATIENT
  Age: 62 Year
  Sex: Male

DRUGS (8)
  1. ADVAIR DISKUS 100/50 [Suspect]
     Indication: ASTHMA
     Dosage: 1PUFF TWICE PER DAY
     Route: 055
  2. ALBUTEROL [Concomitant]
  3. MERCAPTOPURINE [Concomitant]
  4. WELLBUTRIN XL [Concomitant]
  5. OMEPRAZOLE [Concomitant]
  6. DIOVAN HCT [Concomitant]
  7. ALLOPURINOL [Concomitant]
  8. LEXATOL [Concomitant]

REACTIONS (1)
  - CANDIDIASIS [None]
